FAERS Safety Report 13724711 (Version 2)
Quarter: 2017Q3

REPORT INFORMATION
  Report Type: Spontaneous
  Country: US (occurrence: US)
  Receive Date: 20170706
  Receipt Date: 20170707
  Transmission Date: 20171127
  Serious: Yes (Hospitalization)
  Sender: FDA-Public Use
  Company Number: US-TEVA-783007USA

PATIENT
  Age: 79 Year
  Sex: Female
  Weight: 45.4 kg

DRUGS (8)
  1. PROAIR HFA [Suspect]
     Active Substance: ALBUTEROL SULFATE
     Indication: SNEEZING
  2. PROAIR HFA [Suspect]
     Active Substance: ALBUTEROL SULFATE
     Indication: NASAL DISORDER
  3. PROAIR HFA [Suspect]
     Active Substance: ALBUTEROL SULFATE
     Indication: COUGH
  4. GUAIFENESIN. [Concomitant]
     Active Substance: GUAIFENESIN
     Indication: SNEEZING
  5. GUAIFENESIN. [Concomitant]
     Active Substance: GUAIFENESIN
     Indication: DYSPNOEA
     Dosage: 1 PUFF EVER 4 HOURS
  6. GUAIFENESIN. [Concomitant]
     Active Substance: GUAIFENESIN
     Indication: COUGH
  7. GUAIFENESIN. [Concomitant]
     Active Substance: GUAIFENESIN
     Indication: NASAL DISORDER
  8. PROAIR HFA [Suspect]
     Active Substance: ALBUTEROL SULFATE
     Indication: DYSPNOEA
     Route: 065
     Dates: start: 201703

REACTIONS (16)
  - Drug dose omission [Not Recovered/Not Resolved]
  - Adverse event [Recovered/Resolved]
  - Nervousness [Not Recovered/Not Resolved]
  - Wheezing [Unknown]
  - Fear [Not Recovered/Not Resolved]
  - Cough [Unknown]
  - Viral infection [Unknown]
  - Throat irritation [Not Recovered/Not Resolved]
  - Eating disorder [Recovered/Resolved]
  - Dyspnoea [Recovered/Resolved]
  - Nasal disorder [Unknown]
  - Dizziness [Recovered/Resolved]
  - Dysphagia [Recovered/Resolved]
  - Weight decreased [Not Recovered/Not Resolved]
  - Feeling abnormal [Unknown]
  - Vomiting [Not Recovered/Not Resolved]

NARRATIVE: CASE EVENT DATE: 20170617
